FAERS Safety Report 4413777-6 (Version None)
Quarter: 2004Q3

REPORT INFORMATION
  Report Type: 
  Country: None (occurrence: None)
  Receive Date: 20040803
  Receipt Date: 20040721
  Transmission Date: 20050211
  Serious: Yes (Hospitalization)
  Sender: FDA-Public Use
  Company Number: JP-BRISTOL-MYERS SQUIBB COMPANY-12646394

PATIENT
  Age: 40 Year
  Sex: Female
  Weight: 61 kg

DRUGS (2)
  1. DESYREL [Suspect]
     Indication: DEPRESSION
     Route: 048
     Dates: start: 20031203, end: 20040408
  2. DEPROMEL [Suspect]
     Route: 048
     Dates: end: 20040408

REACTIONS (5)
  - BLOOD POTASSIUM DECREASED [None]
  - HYPERVENTILATION [None]
  - LONG QT SYNDROME [None]
  - NASOPHARYNGITIS [None]
  - TORSADE DE POINTES [None]
